FAERS Safety Report 12173634 (Version 1)
Quarter: 2016Q1

REPORT INFORMATION
  Report Type: Spontaneous
  Country: US (occurrence: None)
  Receive Date: 20160311
  Receipt Date: 20160311
  Transmission Date: 20160526
  Serious: Yes (Hospitalization)
  Sender: FDA-Public Use
  Company Number: None

PATIENT
  Age: 82 Year
  Sex: Male

DRUGS (5)
  1. TRAMADOL 50MG [Suspect]
     Active Substance: TRAMADOL
     Indication: ARTHRITIS
     Dosage: 10-12 MONTHS ?? 2 TWICE DAILY TAKEN BY MOUTH
     Route: 048
  2. OXYCODONE [Concomitant]
     Active Substance: OXYCODONE
  3. AMLODIPINE [Concomitant]
     Active Substance: AMLODIPINE BESYLATE
  4. METOPROLOL. [Concomitant]
     Active Substance: METOPROLOL
  5. SENTRYVITAMIN [Concomitant]

REACTIONS (12)
  - Musculoskeletal stiffness [None]
  - Dizziness [None]
  - Neck pain [None]
  - Headache [None]
  - Amnesia [None]
  - Heart rate decreased [None]
  - Axillary pain [None]
  - Nervousness [None]
  - Tremor [None]
  - Chest pain [None]
  - Hypoaesthesia [None]
  - Insomnia [None]

NARRATIVE: CASE EVENT DATE: 20160301
